FAERS Safety Report 6133760-2 (Version None)
Quarter: 2009Q1

REPORT INFORMATION
  Report Type: 
  Country: None (occurrence: None)
  Receive Date: 20090326
  Receipt Date: 20090314
  Transmission Date: 20090719
  Serious: Yes (Other)
  Sender: FDA-Public Use
  Company Number: US-PFIZER INC-2009185026

PATIENT
  Sex: Male

DRUGS (3)
  1. CHANTIX [Suspect]
     Indication: SMOKING CESSATION THERAPY
     Dosage: 1 MG, 2X/DAY
     Dates: start: 20090101, end: 20090101
  2. LIPITOR [Concomitant]
     Dosage: UNKNOWN
  3. TEGRETOL [Concomitant]
     Dosage: UNKNOWN

REACTIONS (3)
  - ANGER [None]
  - HOMICIDAL IDEATION [None]
  - MANIA [None]
